FAERS Safety Report 14354613 (Version 2)
Quarter: 2018Q1

REPORT INFORMATION
  Report Type: Spontaneous
  Country: US (occurrence: US)
  Receive Date: 20180105
  Receipt Date: 20180115
  Transmission Date: 20180509
  Serious: Yes (Other)
  Sender: FDA-Public Use
  Company Number: US-ROCHE-2046748

PATIENT
  Sex: Male

DRUGS (5)
  1. SIMVASTATIN. [Concomitant]
     Active Substance: SIMVASTATIN
  2. GLIPIZIDE. [Concomitant]
     Active Substance: GLIPIZIDE
  3. ERIVEDGE [Suspect]
     Active Substance: VISMODEGIB
     Indication: BASAL CELL CARCINOMA
     Route: 048
     Dates: start: 20170928
  4. VALSARTAN. [Concomitant]
     Active Substance: VALSARTAN
  5. METFORMIN HYDROCHLORIDE. [Concomitant]
     Active Substance: METFORMIN HYDROCHLORIDE

REACTIONS (8)
  - Blood glucose decreased [Unknown]
  - Ageusia [Unknown]
  - Rib fracture [Unknown]
  - Diarrhoea [Unknown]
  - Fall [Unknown]
  - Diabetic coma [Unknown]
  - Weight decreased [Unknown]
  - Decreased appetite [Unknown]
